FAERS Safety Report 9531155 (Version 1)
Quarter: 2013Q3

REPORT INFORMATION
  Report Type: Report from Study
  Country: IN (occurrence: IN)
  Receive Date: 20130918
  Receipt Date: 20130918
  Transmission Date: 20140515
  Serious: Yes (Death, Hospitalization, Other)
  Sender: FDA-Public Use
  Company Number: PHHY2013IN103235

PATIENT
  Age: 61 Year
  Sex: Male

DRUGS (6)
  1. EXELON PATCH [Suspect]
     Indication: PARKINSON^S DISEASE
     Dosage: 9.5 MG, UNK
     Route: 062
     Dates: start: 2011
  2. SYNDOPA PLUS [Concomitant]
     Indication: PARKINSON^S DISEASE
     Dosage: UNK UKN, UNK
  3. APITON [Concomitant]
     Dosage: UNK UKN, UNK
  4. CLONOTRIL [Concomitant]
     Indication: SLEEP DISORDER
     Dosage: UNK UKN, UNK
     Route: 048
  5. ROPARK [Concomitant]
     Dosage: UNK UKN, UNK
     Route: 048
  6. AMANTREL [Concomitant]
     Dosage: UNK UKN, UNK
     Route: 048

REACTIONS (6)
  - Death [Fatal]
  - Leukaemia [Unknown]
  - Lower respiratory tract infection [Unknown]
  - Central nervous system infection [Unknown]
  - Oral infection [Unknown]
  - Eating disorder [Unknown]
